FAERS Safety Report 5477264-9 (Version None)
Quarter: 2007Q4

REPORT INFORMATION
  Report Type: 
  Country: None (occurrence: None)
  Receive Date: 20071004
  Receipt Date: 20070918
  Transmission Date: 20080405
  Serious: Yes (Hospitalization, Other)
  Sender: FDA-Public Use
  Company Number: GB-PFIZER INC-2007063551

PATIENT
  Age: 64 Year
  Sex: Female

DRUGS (3)
  1. METHYLPREDNISOLONE SODIUM SUCCINATE [Suspect]
     Indication: PYODERMA GANGRENOSUM
     Dosage: DAILY DOSE:16MG
  2. CYCLOSPORINE [Suspect]
     Indication: PYODERMA GANGRENOSUM
     Dates: start: 20051001
  3. MYCOPHENOLATE MOFETIL [Suspect]
     Indication: PYODERMA GANGRENOSUM
     Dates: start: 20051001

REACTIONS (1)
  - MYCOBACTERIUM CHELONEI INFECTION [None]
